FAERS Safety Report 8496334-4 (Version None)
Quarter: 2012Q3

REPORT INFORMATION
  Report Type: 
  Country: None (occurrence: None)
  Receive Date: 20120709
  Receipt Date: 20120706
  Transmission Date: 20120928
  Serious: Yes (Hospitalization)
  Sender: FDA-Public Use
  Company Number: US-PFIZER INC-2012010879

PATIENT
  Sex: Female
  Weight: 125 kg

DRUGS (1)
  1. TIKOSYN [Suspect]
     Indication: HEART RATE IRREGULAR
     Dosage: 250 MG, 2X/DAY
     Dates: start: 20101101

REACTIONS (1)
  - MYOCARDIAL INFARCTION [None]
